FAERS Safety Report 25689626 (Version 1)
Quarter: 2025Q3

REPORT INFORMATION
  Report Type: Spontaneous
  Country: EU (occurrence: EU)
  Receive Date: 20250818
  Receipt Date: 20250818
  Transmission Date: 20251020
  Serious: Yes (Hospitalization)
  Sender: ROCHE
  Company Number: None

PATIENT
  Age: 13 Year
  Sex: Female
  Weight: 68 kg

DRUGS (2)
  1. RITUXIMAB [Suspect]
     Active Substance: RITUXIMAB
     Indication: Sjogren^s syndrome
     Route: 042
     Dates: start: 20250606, end: 20250606
  2. PLAQUENIL [Concomitant]
     Active Substance: HYDROXYCHLOROQUINE SULFATE
     Indication: Sjogren^s syndrome
     Route: 048
     Dates: start: 20201015

REACTIONS (1)
  - Serum sickness [Recovered/Resolved]

NARRATIVE: CASE EVENT DATE: 20250618
